FAERS Safety Report 17892185 (Version 8)
Quarter: 2022Q1

REPORT INFORMATION
  Report Type: Spontaneous
  Country: JP (occurrence: JP)
  Receive Date: 20200612
  Receipt Date: 20220202
  Transmission Date: 20220423
  Serious: Yes (Other)
  Sender: FDA-Public Use
  Company Number: JP-ONO-2019JP016255

PATIENT
  Age: 80 Year
  Sex: Male
  Weight: 66.5 kg

DRUGS (19)
  1. PARSABIV [Suspect]
     Active Substance: ETELCALCETIDE HYDROCHLORIDE
     Indication: Hyperparathyroidism secondary
     Dosage: 2.5 MILLIGRAM, 3 TIMES/WK
     Route: 010
     Dates: start: 20180522, end: 20190108
  2. PARSABIV [Suspect]
     Active Substance: ETELCALCETIDE HYDROCHLORIDE
     Dosage: 2.5 MILLIGRAM, 2 TIMES/WK
     Route: 010
     Dates: start: 20190112
  3. EPOETIN ALFA [Concomitant]
     Active Substance: ERYTHROPOIETIN
     Dosage: 1500 IU, QW
     Route: 065
     Dates: end: 20190307
  4. EPOETIN ALFA [Concomitant]
     Active Substance: ERYTHROPOIETIN
     Dosage: 3750 IU, QW
     Route: 065
     Dates: start: 20190309, end: 20190711
  5. EPOETIN ALFA [Concomitant]
     Active Substance: ERYTHROPOIETIN
     Dosage: 4500 IU, QW
     Route: 065
     Dates: start: 20190713, end: 20210422
  6. EPOETIN ALFA [Concomitant]
     Active Substance: ERYTHROPOIETIN
     Dosage: 6000 IU, QW
     Route: 065
     Dates: start: 20210424, end: 20210722
  7. EPOETIN ALFA [Concomitant]
     Active Substance: ERYTHROPOIETIN
     Dosage: 9000 IU, QW
     Route: 065
     Dates: start: 20210724, end: 20220111
  8. EPOETIN ALFA [Concomitant]
     Active Substance: ERYTHROPOIETIN
     Dosage: 6000 IU, QW
     Route: 065
     Dates: start: 20220115
  9. ALFACALCIDOL [Concomitant]
     Active Substance: ALFACALCIDOL
     Dosage: 0.25 UG, EVERYDAY (UNK-25 JUN 2018)
     Route: 048
     Dates: end: 20180625
  10. ALFACALCIDOL [Concomitant]
     Active Substance: ALFACALCIDOL
     Dosage: 0.5 MICROGRAM, QD
     Route: 048
     Dates: start: 20180626
  11. ROCALTROL [Concomitant]
     Active Substance: CALCITRIOL
     Dosage: 0.5 MICROGRAM, 3 TIMES/WK
     Route: 065
     Dates: end: 20200418
  12. ROCALTROL [Concomitant]
     Active Substance: CALCITRIOL
     Dosage: 0.5 MICROGRAM, 2 TIMES/WK
     Route: 065
     Dates: start: 20200421
  13. FOSRENOL [Concomitant]
     Active Substance: LANTHANUM CARBONATE
     Dosage: 750 MG, EVERYDAY (UNK-17 SEP 2018)
     Route: 048
     Dates: end: 20180917
  14. CALCIUM CARBONATE [Concomitant]
     Active Substance: CALCIUM CARBONATE
     Dosage: 1000 MG, EVERYDAY
     Route: 048
     Dates: start: 20180626, end: 20180821
  15. CALCIUM CARBONATE [Concomitant]
     Active Substance: CALCIUM CARBONATE
     Dosage: 500 MG, EVERYDAY
     Route: 048
     Dates: start: 20180822, end: 20181015
  16. RENAGEL [Concomitant]
     Active Substance: SEVELAMER HYDROCHLORIDE
     Dosage: 1500 MILLIGRAM, QD
     Route: 048
  17. IRON SUCROSE [Concomitant]
     Active Substance: IRON SUCROSE
     Dosage: 40 MILLIGRAM, QWK
     Route: 042
     Dates: start: 20200728, end: 20201001
  18. IRON SUCROSE [Concomitant]
     Active Substance: IRON SUCROSE
     Dosage: 80 MILLIGRAM, QWK
     Route: 042
     Dates: start: 20211106
  19. LANTHANUM CARBONATE [Concomitant]
     Active Substance: LANTHANUM CARBONATE
     Dosage: 750 MILLIGRAM, QD
     Route: 048
     Dates: start: 20180918

REACTIONS (18)
  - Cataract [Not Recovered/Not Resolved]
  - Retinal vein occlusion [Not Recovered/Not Resolved]
  - Vitreous haemorrhage [Recovered/Resolved]
  - Pain in extremity [Recovered/Resolved]
  - Meniscus injury [Recovered/Resolved]
  - Influenza [Recovered/Resolved]
  - Upper respiratory tract inflammation [Recovered/Resolved]
  - Bronchitis [Recovered/Resolved]
  - Rhinitis allergic [Recovered/Resolved]
  - Dermatitis [Recovered/Resolved]
  - Upper respiratory tract inflammation [Recovered/Resolved]
  - Bronchitis [Recovered/Resolved]
  - Pain [Recovered/Resolved]
  - Eczema asteatotic [Not Recovered/Not Resolved]
  - Headache [Recovered/Resolved]
  - Rhinitis allergic [Not Recovered/Not Resolved]
  - Chest pain [Recovered/Resolved]
  - Nausea [Recovered/Resolved]

NARRATIVE: CASE EVENT DATE: 20180523
